FAERS Safety Report 18445570 (Version 2)
Quarter: 2020Q4

REPORT INFORMATION
  Report Type: Spontaneous
  Country: US (occurrence: US)
  Receive Date: 20201030
  Receipt Date: 20201102
  Transmission Date: 20210114
  Serious: Yes (Life-Threatening, Other)
  Sender: FDA-Public Use
  Company Number: US-PFIZER INC-2020419440

PATIENT
  Age: 36 Year
  Sex: Male
  Weight: 78.02 kg

DRUGS (1)
  1. FLAGYL [Suspect]
     Active Substance: METRONIDAZOLE\METRONIDAZOLE HYDROCHLORIDE
     Indication: INFECTION PARASITIC
     Dosage: 500 MG, 3X/DAY
     Route: 048
     Dates: start: 20200602, end: 20200612

REACTIONS (8)
  - Paranoia [Not Recovered/Not Resolved]
  - Insomnia [Not Recovered/Not Resolved]
  - Headache [Unknown]
  - Fear [Not Recovered/Not Resolved]
  - Deafness [Not Recovered/Not Resolved]
  - Tinnitus [Not Recovered/Not Resolved]
  - Suicidal ideation [Not Recovered/Not Resolved]
  - Panic attack [Not Recovered/Not Resolved]
